FAERS Safety Report 18015799 (Version 1)
Quarter: 2020Q3

REPORT INFORMATION
  Report Type: Spontaneous
  Country: US (occurrence: US)
  Receive Date: 20200713
  Receipt Date: 20200713
  Transmission Date: 20201103
  Serious: Yes (Disabling, Other)
  Sender: FDA-Public Use
  Company Number: US-NOVOPROD-739090

PATIENT
  Sex: Male

DRUGS (1)
  1. TRESIBA [Suspect]
     Active Substance: INSULIN DEGLUDEC
     Indication: TYPE 2 DIABETES MELLITUS
     Dosage: 40 IU, QD (40 UNITS ONCE DAILY)
     Route: 058
     Dates: start: 2018

REACTIONS (3)
  - Blindness unilateral [Unknown]
  - Disability [Unknown]
  - Wheelchair user [Unknown]
